FAERS Safety Report 6509910-2 (Version None)
Quarter: 2009Q4

REPORT INFORMATION
  Report Type: 
  Country: None (occurrence: None)
  Receive Date: 20091222
  Receipt Date: 20091209
  Transmission Date: 20100525
  Serious: Yes (Hospitalization, Other)
  Sender: FDA-Public Use
  Company Number: PHHY2009BE54216

PATIENT
  Sex: Female

DRUGS (3)
  1. TEGRETOL [Suspect]
     Indication: TRIGEMINAL NEURALGIA
     Dosage: UNK
     Dates: start: 20081024
  2. LYRICA [Concomitant]
     Dosage: 2 X 75 MG = 150 MG DAILY
  3. LYRICA [Concomitant]
     Dosage: 2 X 100 MG = 200 MG DAILY
     Dates: start: 20081024

REACTIONS (21)
  - BODY TEMPERATURE DECREASED [None]
  - BRADYCARDIA [None]
  - BUNDLE BRANCH BLOCK LEFT [None]
  - CARDIAC FAILURE CONGESTIVE [None]
  - CONFUSIONAL STATE [None]
  - DEMENTIA [None]
  - DRUG TOXICITY [None]
  - FALL [None]
  - FOLATE DEFICIENCY [None]
  - GENERAL PHYSICAL HEALTH DETERIORATION [None]
  - HAEMATOMA [None]
  - HAEMORRHAGE [None]
  - HEART RATE INCREASED [None]
  - HEART SOUNDS ABNORMAL [None]
  - HYPOTENSION [None]
  - NORMOCHROMIC NORMOCYTIC ANAEMIA [None]
  - OEDEMA [None]
  - PALLOR [None]
  - PERIPHERAL EMBOLISM [None]
  - SOMNOLENCE [None]
  - WOUND [None]
